FAERS Safety Report 14099200 (Version 2)
Quarter: 2017Q4

REPORT INFORMATION
  Report Type: Spontaneous
  Country: CH (occurrence: CH)
  Receive Date: 20171017
  Receipt Date: 20171031
  Transmission Date: 20180321
  Serious: Yes (Hospitalization)
  Sender: FDA-Public Use
  Company Number: CH-PFIZER INC-2017438119

PATIENT
  Age: 86 Year
  Sex: Female

DRUGS (10)
  1. ASPIRIN CARDIO [Concomitant]
     Active Substance: ASPIRIN
     Dosage: UNK
  2. BRILIQUE [Concomitant]
     Active Substance: TICAGRELOR
     Dosage: UNK
  3. ATORVASTATIN PFIZER [Suspect]
     Active Substance: ATORVASTATIN
     Indication: ACUTE MYOCARDIAL INFARCTION
     Dosage: 20MG, 1X/DAY (IN THE EVENING)
     Route: 048
     Dates: start: 20170321, end: 20170322
  4. VITAMIN D3 [Concomitant]
     Active Substance: CHOLECALCIFEROL
     Dosage: UNK
  5. TRIATEC /00885601/ [Concomitant]
     Active Substance: RAMIPRIL
     Dosage: UNK
  6. ROCEPHIN [Suspect]
     Active Substance: CEFTRIAXONE SODIUM
     Indication: CYSTITIS
     Dosage: 1 DF, DOSES CANNOT BE DETERMINED
     Route: 041
     Dates: start: 20170921, end: 20170921
  7. TOREM /01036501/ [Concomitant]
     Active Substance: TORSEMIDE
     Dosage: UNK
  8. CIPROXIN /00697201/ [Suspect]
     Active Substance: CIPROFLOXACIN
     Indication: CYSTITIS
     Dosage: 500MG, 2X/DAY (1-0-1), BEGINNING: 21SEP EVENING
     Route: 048
     Dates: start: 20170921, end: 20170924
  9. QUETIAPIN [Suspect]
     Active Substance: QUETIAPINE
     Indication: ACUTE MYOCARDIAL INFARCTION
     Dosage: 5MG, ONCE AT NIGHT
     Route: 048
     Dates: start: 20170921, end: 20170921
  10. FRAGMIN [Concomitant]
     Active Substance: DALTEPARIN SODIUM
     Dosage: UNK
     Dates: start: 20170921, end: 20170928

REACTIONS (3)
  - Cholestatic liver injury [Recovering/Resolving]
  - Eosinophilia [Unknown]
  - Drug-induced liver injury [Recovering/Resolving]

NARRATIVE: CASE EVENT DATE: 20170921
